FAERS Safety Report 5247144-2 (Version None)
Quarter: 2007Q1

REPORT INFORMATION
  Report Type: 
  Country: None (occurrence: None)
  Receive Date: 20070221
  Receipt Date: 20070209
  Transmission Date: 20070707
  Serious: Yes (Other)
  Sender: FDA-Public Use
  Company Number: 2007US000333

PATIENT
  Age: 32 Year
  Sex: 0

DRUGS (1)
  1. PROTOPIC [Suspect]
     Indication: DRUG USE FOR UNKNOWN INDICATION
     Dosage: TOPICAL
     Route: 061

REACTIONS (1)
  - HODGKIN'S DISEASE [None]
